FAERS Safety Report 9624314 (Version 1)
Quarter: 2013Q4

REPORT INFORMATION
  Report Type: Spontaneous
  Country: GB (occurrence: GB)
  Receive Date: 20131015
  Receipt Date: 20131015
  Transmission Date: 20140711
  Serious: Yes (Hospitalization)
  Sender: FDA-Public Use
  Company Number: GB-TEVA-437162ISR

PATIENT
  Age: 50 Year
  Sex: Male
  Weight: 67.12 kg

DRUGS (2)
  1. TRAMADOL [Suspect]
  2. PREGABALIN [Interacting]
     Indication: NEURALGIA
     Dosage: MAXIMUM
     Route: 048
     Dates: start: 20130816, end: 20130823

REACTIONS (2)
  - Convulsion [Recovered/Resolved]
  - Drug interaction [Unknown]
